FAERS Safety Report 5410980-3 (Version None)
Quarter: 2007Q3

REPORT INFORMATION
  Report Type: 
  Country: None (occurrence: None)
  Receive Date: 20070810
  Receipt Date: 20070628
  Transmission Date: 20080115
  Serious: No
  Sender: FDA-Public Use
  Company Number: A0660722A

PATIENT

DRUGS (2)
  1. ALTABAX [Suspect]
     Indication: SKIN DISORDER
     Route: 061
  2. NO CONCURRENT MEDICATION [Concomitant]

REACTIONS (1)
  - BURNING SENSATION [None]
